FAERS Safety Report 6998142-X (Version None)
Quarter: 2010Q3

REPORT INFORMATION
  Report Type: 
  Country: None (occurrence: None)
  Receive Date: 20100920
  Receipt Date: 20100713
  Transmission Date: 20110219
  Serious: No
  Sender: FDA-Public Use
  Company Number: US-ASTRAZENECA-2010SE34564

PATIENT
  Age: 12589 Day
  Sex: Female

DRUGS (6)
  1. SEROQUEL [Suspect]
     Route: 048
     Dates: start: 20050217
  2. METFORMIN [Concomitant]
     Route: 048
     Dates: start: 20080619
  3. LISINOPRIL AND HYDROCHLOROTHIAZIDE [Concomitant]
     Dosage: 20/25 MG PO QD
     Route: 048
     Dates: start: 20080619
  4. PRAVASTATIN [Concomitant]
     Route: 048
     Dates: start: 20080619
  5. FLEXERIL [Concomitant]
     Route: 048
     Dates: start: 20080619
  6. IBUPROFEN [Concomitant]
     Dosage: 800 MG PO TID PRN
     Route: 048
     Dates: start: 20080619

REACTIONS (5)
  - BACK PAIN [None]
  - ESSENTIAL HYPERTENSION [None]
  - HIRSUTISM [None]
  - HYPERLIPIDAEMIA [None]
  - TYPE 2 DIABETES MELLITUS [None]
